FAERS Safety Report 8131615-5 (Version None)
Quarter: 2012Q1

REPORT INFORMATION
  Report Type: 
  Country: None (occurrence: None)
  Receive Date: 20120213
  Receipt Date: 20120206
  Transmission Date: 20120608
  Serious: No
  Sender: FDA-Public Use
  Company Number: US-PFIZER INC-2012032875

PATIENT

DRUGS (1)
  1. CELEBREX [Suspect]
     Indication: PERIARTHRITIS
     Dosage: 200 MG, 2X/DAY

REACTIONS (2)
  - FATIGUE [None]
  - HYPOTHYROIDISM [None]
